FAERS Safety Report 7375185-8 (Version None)
Quarter: 2011Q1

REPORT INFORMATION
  Report Type: 
  Country: None (occurrence: None)
  Receive Date: 20110301
  Receipt Date: 20100519
  Transmission Date: 20110831
  Serious: Yes (Disabling, Other)
  Sender: FDA-Public Use
  Company Number: ALA_00656_2010

PATIENT
  Sex: Male
  Weight: 97.5234 kg

DRUGS (8)
  1. TEMAZEPAM [Concomitant]
  2. SINEMET [Concomitant]
  3. PHENERGAN HCL [Concomitant]
  4. GLUCOPHAGE [Concomitant]
  5. MIRAPEX [Concomitant]
  6. HERBALIFE PRODUCTS [Concomitant]
  7. REGLAN [Suspect]
     Indication: IMPAIRED GASTRIC EMPTYING
     Dosage: DF ORAL
     Route: 048
     Dates: start: 20090701, end: 20100101
  8. NEXIUM [Concomitant]

REACTIONS (2)
  - EXTRAPYRAMIDAL DISORDER [None]
  - DYSKINESIA [None]
